FAERS Safety Report 16185945 (Version 1)
Quarter: 2019Q2

REPORT INFORMATION
  Report Type: Spontaneous
  Country: US (occurrence: US)
  Receive Date: 20190411
  Receipt Date: 20190411
  Transmission Date: 20190711
  Serious: No
  Sender: FDA-Public Use
  Company Number: US-TEVA-2019-US-1037433

PATIENT
  Sex: Female

DRUGS (1)
  1. LIDOCAINE 2% CREAM [Suspect]
     Active Substance: LIDOCAINE
     Route: 061

REACTIONS (1)
  - Ulcer [Unknown]
